FAERS Safety Report 9891840 (Version 1)
Quarter: 2014Q1

REPORT INFORMATION
  Report Type: Spontaneous
  Country: US (occurrence: US)
  Receive Date: 20140212
  Receipt Date: 20140212
  Transmission Date: 20141002
  Serious: Yes (Other)
  Sender: FDA-Public Use
  Company Number: US-BAYER-2014-022009

PATIENT
  Age: 26 Year
  Sex: Female

DRUGS (1)
  1. MIRENA [Suspect]
     Dosage: 20 MCG/24HR, CONT
     Route: 015

REACTIONS (7)
  - Intracranial pressure increased [None]
  - Benign intracranial hypertension [None]
  - Vision blurred [None]
  - Nausea [None]
  - Migraine [None]
  - Injury [None]
  - Pain [None]
